FAERS Safety Report 13131881 (Version 2)
Quarter: 2017Q1

REPORT INFORMATION
  Report Type: Spontaneous
  Country: US (occurrence: US)
  Receive Date: 20170119
  Receipt Date: 20170328
  Transmission Date: 20170428
  Serious: No
  Sender: FDA-Public Use
  Company Number: US-ACTELION-A-NJ2017-148647

PATIENT
  Age: 37 Year
  Sex: Female
  Weight: 90.7 kg

DRUGS (4)
  1. TRACLEER [Concomitant]
     Active Substance: BOSENTAN
     Indication: PULMONARY ARTERIAL HYPERTENSION
  2. VENTAVIS [Suspect]
     Active Substance: ILOPROST
     Indication: PULMONARY ARTERIAL HYPERTENSION
     Dosage: 5 MCG, 6 TO 9 TIMES QD
     Route: 055
     Dates: start: 20111220
  3. SILDENAFIL CITRATE. [Concomitant]
     Active Substance: SILDENAFIL CITRATE
  4. COUMADIN [Concomitant]
     Active Substance: WARFARIN SODIUM

REACTIONS (11)
  - Dyspnoea [Unknown]
  - Unevaluable event [Unknown]
  - Headache [Unknown]
  - Pyrexia [Unknown]
  - Bronchitis [Unknown]
  - Heart rate increased [Unknown]
  - Malaise [Unknown]
  - Cough [Unknown]
  - Wheezing [Unknown]
  - Diarrhoea [Unknown]
  - Night sweats [Unknown]

NARRATIVE: CASE EVENT DATE: 20161228
